FAERS Safety Report 20651196 (Version 6)
Quarter: 2022Q2

REPORT INFORMATION
  Report Type: Spontaneous
  Country: JP (occurrence: JP)
  Receive Date: 20220329
  Receipt Date: 20220616
  Transmission Date: 20220721
  Serious: Yes (Other)
  Sender: FDA-Public Use
  Company Number: JP-NOVARTISPH-NVSJ2022JP004757

PATIENT
  Age: 14 Month
  Sex: Male
  Weight: 10.4 kg

DRUGS (8)
  1. ZOLGENSMA [Suspect]
     Active Substance: ONASEMNOGENE ABEPARVOVEC-XIOI
     Indication: Spinal muscular atrophy
     Dosage: 1.1X10^14 VG/KG
     Route: 041
     Dates: start: 20220309, end: 20220309
  2. PREDNISOLONE [Concomitant]
     Active Substance: PREDNISOLONE
     Indication: Hepatic enzyme increased
     Dosage: 1MG/KG/DAY
     Route: 048
     Dates: start: 20220308, end: 20220318
  3. PREDNISOLONE [Concomitant]
     Active Substance: PREDNISOLONE
     Dosage: 2MG/KG/DAY
     Route: 048
     Dates: start: 20220319, end: 20220325
  4. PREDNISOLONE [Concomitant]
     Active Substance: PREDNISOLONE
     Dosage: 1MG/KG/DAY
     Route: 048
     Dates: start: 20220326, end: 20220419
  5. PREDNISOLONE [Concomitant]
     Active Substance: PREDNISOLONE
     Dosage: 2MG/KG/DAY
     Route: 048
     Dates: start: 20220420, end: 20220505
  6. PREDNISOLONE [Concomitant]
     Active Substance: PREDNISOLONE
     Dosage: UNK
     Route: 048
     Dates: start: 20220506, end: 20220531
  7. PREDNISOLONE [Concomitant]
     Active Substance: PREDNISOLONE
     Dosage: UNK
     Route: 048
     Dates: start: 20220601
  8. SODIUM PICOSULFATE [Concomitant]
     Active Substance: SODIUM PICOSULFATE
     Indication: Product used for unknown indication
     Dosage: 6 DRP
     Route: 065
     Dates: start: 20220308

REACTIONS (17)
  - Renal impairment [Recovered/Resolved]
  - Blood urea increased [Unknown]
  - Blood creatinine increased [Unknown]
  - Urine output decreased [Recovered/Resolved]
  - Haemolytic anaemia [Recovered/Resolved]
  - Haemoglobin decreased [Unknown]
  - Blood lactate dehydrogenase increased [Unknown]
  - Thrombotic microangiopathy [Recovered/Resolved]
  - Platelet count decreased [Recovered/Resolved]
  - Red cell fragmentation syndrome [Unknown]
  - Hepatic enzyme increased [Recovered/Resolved]
  - Aspartate aminotransferase increased [Not Recovered/Not Resolved]
  - Alanine aminotransferase increased [Not Recovered/Not Resolved]
  - Pyrexia [Recovered/Resolved]
  - Decreased appetite [Unknown]
  - Respiratory syncytial virus infection [Recovered/Resolved]
  - Pyrexia [Unknown]

NARRATIVE: CASE EVENT DATE: 20220312
